FAERS Safety Report 5266708-3 (Version None)
Quarter: 2007Q1

REPORT INFORMATION
  Report Type: 
  Country: None (occurrence: None)
  Receive Date: 20070315
  Receipt Date: 20070307
  Transmission Date: 20070707
  Serious: Yes (Other)
  Sender: FDA-Public Use
  Company Number: JP-MERCK-0703USA01907

PATIENT
  Age: 38 Year
  Sex: Male

DRUGS (2)
  1. PROPECIA [Suspect]
     Indication: ALOPECIA
     Route: 048
     Dates: start: 20061202, end: 20070120
  2. PROPECIA [Suspect]
     Route: 048
     Dates: start: 20061202

REACTIONS (2)
  - DRUG DISPENSING ERROR [None]
  - HEPATIC FUNCTION ABNORMAL [None]
